FAERS Safety Report 8322540-5 (Version None)
Quarter: 2012Q2

REPORT INFORMATION
  Report Type: 
  Country: None (occurrence: None)
  Receive Date: 20120430
  Receipt Date: 20120420
  Transmission Date: 20120825
  Serious: Yes (Disabling)
  Sender: FDA-Public Use
  Company Number: FR-ASTRAZENECA-2012SE13033

PATIENT
  Sex: Male

DRUGS (2)
  1. TENORMIN [Suspect]
     Route: 048
  2. PROPRANOLOL [Suspect]
     Indication: TACHYCARDIA
     Route: 065
     Dates: end: 20110101

REACTIONS (6)
  - INTERMITTENT CLAUDICATION [None]
  - TACHYCARDIA [None]
  - TINNITUS [None]
  - DRUG INEFFECTIVE [None]
  - TREATMENT NONCOMPLIANCE [None]
  - DRUG INTOLERANCE [None]
